FAERS Safety Report 20839624 (Version 2)
Quarter: 2022Q3

REPORT INFORMATION
  Report Type: Spontaneous
  Country: US (occurrence: US)
  Receive Date: 20220517
  Receipt Date: 20220823
  Transmission Date: 20221026
  Serious: No
  Sender: FDA-Public Use
  Company Number: US-BRISTOL-MYERS SQUIBB COMPANY-2022-035528

PATIENT
  Age: 81 Year
  Sex: Male

DRUGS (4)
  1. REVLIMID [Suspect]
     Active Substance: LENALIDOMIDE
     Indication: Plasma cell myeloma
     Dosage: FREQUENCY : TAKE 1 CAPSULE (10MG) BY MOUTH  DAILY FOR 21 DAYS  ON THEN  7 DAYS OFF.
     Route: 048
     Dates: start: 20220411
  2. REVLIMID [Suspect]
     Active Substance: LENALIDOMIDE
     Dosage: 21 DAYS, 1 WEEK OFF
     Route: 048
     Dates: start: 20220504, end: 20220510
  3. VELCADE [Concomitant]
     Active Substance: BORTEZOMIB
     Indication: Plasma cell myeloma
     Dosage: WEEKLY
     Route: 065
     Dates: start: 20220414, end: 20220712
  4. XGEVA [Concomitant]
     Active Substance: DENOSUMAB
     Indication: Plasma cell myeloma
     Dosage: Q 28 DAYS
     Route: 065
     Dates: start: 20220331, end: 20220809

REACTIONS (2)
  - Pruritus [Recovering/Resolving]
  - Swelling face [Recovering/Resolving]

NARRATIVE: CASE EVENT DATE: 20220506
